FAERS Safety Report 17984518 (Version 1)
Quarter: 2020Q3

REPORT INFORMATION
  Report Type: Spontaneous
  Country: DE (occurrence: DE)
  Receive Date: 20200706
  Receipt Date: 20200706
  Transmission Date: 20201103
  Serious: Yes (Death, Other)
  Sender: FDA-Public Use
  Company Number: DE-PFIZER INC-2020257277

PATIENT
  Sex: Male

DRUGS (1)
  1. CYTOTEC [Suspect]
     Active Substance: MISOPROSTOL
     Indication: LABOUR INDUCTION
     Dosage: 25 UG, 2 DF ONLY ONCE
     Route: 064
     Dates: start: 20180416, end: 20180417

REACTIONS (3)
  - Neonatal asphyxia [Fatal]
  - Foetal heart rate decreased [Unknown]
  - Foetal exposure during delivery [Fatal]

NARRATIVE: CASE EVENT DATE: 20180417
